FAERS Safety Report 11786722 (Version 1)
Quarter: 2015Q4

REPORT INFORMATION
  Report Type: Spontaneous
  Country: US (occurrence: US)
  Receive Date: 20151130
  Receipt Date: 20151130
  Transmission Date: 20160305
  Serious: Yes (Congenital Anomaly, Other)
  Sender: FDA-Public Use
  Company Number: US-GLAXOSMITHKLINE-US2014GSK054938

PATIENT
  Age: 0 Year
  Sex: Female
  Weight: 2.32 kg

DRUGS (1)
  1. WELLBUTRIN XL [Suspect]
     Active Substance: BUPROPION HYDROCHLORIDE
     Indication: DEPRESSION
     Dosage: 300 MG, 1D
     Route: 064
     Dates: start: 201210

REACTIONS (4)
  - Maternal drugs affecting foetus [Unknown]
  - Foetal exposure during pregnancy [Unknown]
  - Fallot^s tetralogy [Unknown]
  - Low birth weight baby [Unknown]

NARRATIVE: CASE EVENT DATE: 201210
